FAERS Safety Report 15566775 (Version 5)
Quarter: 2019Q4

REPORT INFORMATION
  Report Type: Spontaneous
  Country: US (occurrence: US)
  Receive Date: 20181030
  Receipt Date: 20191002
  Transmission Date: 20200122
  Serious: Yes (Death, Hospitalization, Other)
  Sender: FDA-Public Use
  Company Number: US-PFIZER INC-2018430869

PATIENT
  Age: 73 Year
  Sex: Male
  Weight: 97.52 kg

DRUGS (12)
  1. XANAX [Suspect]
     Active Substance: ALPRAZOLAM
     Indication: ANXIETY
     Dosage: 1 MG, AS NEEDED (AT BEDTIME AS NEEDED) (1MG BY MOUTH AT BEDTIME AS NEEDED)
     Route: 048
  2. ALPRAZOLAM. [Suspect]
     Active Substance: ALPRAZOLAM
     Indication: ANXIETY
     Dosage: 1 MG, AS NEEDED
     Route: 048
     Dates: start: 20161002, end: 20161002
  3. OXYGEN. [Concomitant]
     Active Substance: OXYGEN
  4. XANAX [Suspect]
     Active Substance: ALPRAZOLAM
     Indication: INSOMNIA
  5. HYDROCODONE [Concomitant]
     Active Substance: HYDROCODONE
     Dosage: UNK
  6. INDOMETHACIN [INDOMETACIN SODIUM] [Concomitant]
     Active Substance: INDOMETHACIN SODIUM
     Indication: MUSCULOSKELETAL PAIN
  7. XANAX [Suspect]
     Active Substance: ALPRAZOLAM
     Indication: DEPRESSION
     Dosage: 1 MG, UNK [TWICE, ON 2 OCCASIONS]
     Route: 048
     Dates: end: 20181002
  8. LASIX [Concomitant]
     Active Substance: FUROSEMIDE
     Indication: RENAL IMPAIRMENT
     Dosage: 40 MG, 1X/DAY [IN THE MORNING]
  9. NORCO [Concomitant]
     Active Substance: ACETAMINOPHEN\HYDROCODONE BITARTRATE
     Indication: PAIN
     Dosage: 1 TABLET AS NEEDED [PARACETAMOL: 325 MG/HYDROCODONE BITARTRATE: 10 MG]
     Route: 048
  10. INDOMETHACIN [INDOMETACIN SODIUM] [Concomitant]
     Active Substance: INDOMETHACIN SODIUM
     Indication: GOUT
     Dosage: 25 MG, AS NEEDED(ONE PO, GIVEN PER ORDER AT 2200)
     Route: 048
  11. ALPRAZOLAM. [Suspect]
     Active Substance: ALPRAZOLAM
     Indication: DEPRESSION
  12. PERCOCET [Concomitant]
     Active Substance: ACETAMINOPHEN\OXYCODONE HYDROCHLORIDE
     Indication: MUSCULOSKELETAL PAIN
     Dosage: UNK
     Dates: start: 20161008

REACTIONS (8)
  - Arteriosclerosis [Fatal]
  - Miosis [Unknown]
  - Myocardial infarction [Fatal]
  - Overdose [Unknown]
  - Weight increased [Unknown]
  - Fall [Recovered/Resolved]
  - Unresponsive to stimuli [Unknown]
  - Pallor [Unknown]

NARRATIVE: CASE EVENT DATE: 2016
